FAERS Safety Report 9199892 (Version 3)
Quarter: 2013Q2

REPORT INFORMATION
  Report Type: Spontaneous
  Country: US (occurrence: US)
  Receive Date: 20130329
  Receipt Date: 20130415
  Transmission Date: 20140414
  Serious: Yes (Hospitalization)
  Sender: FDA-Public Use
  Company Number: US-JNJFOC-20130312162

PATIENT
  Age: 77 Year
  Sex: Female
  Weight: 63.7 kg

DRUGS (5)
  1. RIVAROXABAN [Suspect]
     Indication: THROMBOSIS PROPHYLAXIS
     Route: 048
     Dates: start: 20121003, end: 20121120
  2. ASPIRIN [Suspect]
     Indication: PRODUCT USED FOR UNKNOWN INDICATION
     Route: 048
     Dates: end: 20121120
  3. ENOXAPARIN [Suspect]
     Indication: PULMONARY EMBOLISM
     Dosage: ONE DOSE
     Route: 058
     Dates: start: 20121120, end: 20121120
  4. WARFARIN [Suspect]
     Indication: PRODUCT USED FOR UNKNOWN INDICATION
     Dosage: ONE DOSE
     Route: 048
  5. IRON [Concomitant]
     Indication: ANAEMIA
     Route: 065

REACTIONS (5)
  - Dizziness [Unknown]
  - Pulmonary embolism [Recovering/Resolving]
  - Anaemia [Recovering/Resolving]
  - Duodenal ulcer [Unknown]
  - Gastrointestinal haemorrhage [Unknown]
